FAERS Safety Report 18012855 (Version 1)
Quarter: 2020Q3

REPORT INFORMATION
  Report Type: Spontaneous
  Country: FR (occurrence: FR)
  Receive Date: 20200713
  Receipt Date: 20200713
  Transmission Date: 20201103
  Serious: Yes (Hospitalization)
  Sender: FDA-Public Use
  Company Number: FR-TEVA-2020-FR-1799051

PATIENT
  Age: 39 Year
  Sex: Male

DRUGS (2)
  1. DIAZEPAM. [Suspect]
     Active Substance: DIAZEPAM
     Dosage: 60 MG
     Route: 048
  2. METHADONE (CHLORHYDRATE DE) [Suspect]
     Active Substance: METHADONE HYDROCHLORIDE
     Dosage: 180 MG
     Route: 048

REACTIONS (2)
  - Respiratory depression [Recovered/Resolved]
  - Somnolence [Recovered/Resolved]
